FAERS Safety Report 4678813-0 (Version None)
Quarter: 2005Q2

REPORT INFORMATION
  Report Type: 
  Country: None (occurrence: None)
  Receive Date: 20050531
  Receipt Date: 20050517
  Transmission Date: 20051028
  Serious: Yes (Hospitalization)
  Sender: FDA-Public Use
  Company Number: 2005BI007988

PATIENT
  Age: 48 Year
  Sex: Female

DRUGS (1)
  1. AVONEX [Suspect]
     Indication: MULTIPLE SCLEROSIS
     Dosage: 30 UG; QW; IM
     Route: 030
     Dates: start: 20020305

REACTIONS (4)
  - INTERVERTEBRAL DISC DEGENERATION [None]
  - OPTIC NEURITIS [None]
  - ROTATOR CUFF SYNDROME [None]
  - TRAUMATIC ARTHROPATHY [None]
